FAERS Safety Report 5847818-6 (Version None)
Quarter: 2008Q3

REPORT INFORMATION
  Report Type: 
  Country: None (occurrence: None)
  Receive Date: 20080814
  Receipt Date: 20080731
  Transmission Date: 20090109
  Serious: Yes (Hospitalization)
  Sender: FDA-Public Use
  Company Number: 2006BI005066

PATIENT
  Age: 51 Year
  Sex: Female

DRUGS (4)
  1. AVONEX [Suspect]
     Indication: MULTIPLE SCLEROSIS
     Dosage: 30 UG;QW;IM
     Route: 030
     Dates: start: 20020101
  2. ADRENERGICS [Concomitant]
  3. INHALANTS [Concomitant]
  4. REBIF [Concomitant]

REACTIONS (4)
  - CONDITION AGGRAVATED [None]
  - DEMYELINATION [None]
  - MENINGIOMA [None]
  - MULTIPLE SCLEROSIS RELAPSE [None]
